FAERS Safety Report 10684452 (Version 2)
Quarter: 2015Q1

REPORT INFORMATION
  Report Type: Spontaneous
  Country: JP (occurrence: None)
  Receive Date: 20141229
  Receipt Date: 20150107
  Transmission Date: 20150720
  Serious: Yes (Other)
  Sender: FDA-Public Use
  Company Number: 2624134

PATIENT
  Age: 91 Year
  Sex: Male
  Weight: 41.6 kg

DRUGS (5)
  1. DOPAMINE HYDROCHLORIDE. [Concomitant]
     Active Substance: DOPAMINE HYDROCHLORIDE
  2. PIPERACILLIN AND TAZOBACTAM [Concomitant]
     Active Substance: PIPERACILLIN SODIUM\TAZOBACTAM SODIUM
  3. HEPARIN SODIUM. [Concomitant]
     Active Substance: HEPARIN SODIUM
  4. DEXMEDETOMIDINE HYDROCHLORIDE. [Suspect]
     Active Substance: DEXMEDETOMIDINE HYDROCHLORIDE
     Indication: SEDATION
     Route: 041
     Dates: start: 20141023, end: 20141028
  5. PLASMA PROTEIN FRACTION (HUMAN) [Concomitant]
     Active Substance: PLASMA PROTEIN FRACTION (HUMAN)

REACTIONS (9)
  - Pneumonia [None]
  - Sinus arrest [None]
  - Sinus bradycardia [None]
  - Respiratory acidosis [None]
  - Drug ineffective [None]
  - Mean cell haemoglobin decreased [None]
  - C-reactive protein increased [None]
  - Red blood cell count decreased [None]
  - Haemoglobin decreased [None]

NARRATIVE: CASE EVENT DATE: 20141024
